FAERS Safety Report 9384288 (Version 4)
Quarter: 2013Q3

REPORT INFORMATION
  Report Type: Report from Study
  Country: BR (occurrence: BR)
  Receive Date: 20130705
  Receipt Date: 20130925
  Transmission Date: 20140515
  Serious: Yes (Other)
  Sender: FDA-Public Use
  Company Number: PHHY2013BR067980

PATIENT
  Sex: Female
  Weight: 40 kg

DRUGS (4)
  1. FORASEQ [Suspect]
     Indication: ASTHMA
     Dosage: 1 DF, BID
  2. ACLASTA [Concomitant]
     Dosage: UNK UKN, UNK
     Dates: start: 201305
  3. OPTIVE [Concomitant]
     Indication: DRY EYE
     Dosage: 1 DRP, 6QD (1 DRP. IN EACH EYE, 6 TIMES PER DAY)
  4. GENTEAL GEL [Concomitant]
     Indication: DRY EYE
     Dosage: BID (TWICE PER DAY)

REACTIONS (15)
  - Post procedural complication [Unknown]
  - Scoliosis [Not Recovered/Not Resolved]
  - Gastric ulcer [Unknown]
  - Lung infection [Recovered/Resolved]
  - Glaucoma [Unknown]
  - Ocular hyperaemia [Unknown]
  - Cataract [Recovering/Resolving]
  - Depression [Unknown]
  - Arthralgia [Not Recovered/Not Resolved]
  - Pain [Recovering/Resolving]
  - Cartilage injury [Not Recovered/Not Resolved]
  - Eye inflammation [Recovered/Resolved]
  - Osteoporosis [Not Recovered/Not Resolved]
  - Anaemia [Recovered/Resolved]
  - Osteoarthritis [Not Recovered/Not Resolved]
